FAERS Safety Report 5782564-9 (Version None)
Quarter: 2008Q2

REPORT INFORMATION
  Report Type: 
  Country: None (occurrence: None)
  Receive Date: 20080623
  Receipt Date: 20080611
  Transmission Date: 20081010
  Serious: Yes (Life-Threatening, Disabling)
  Sender: FDA-Public Use
  Company Number: CA-PFIZER INC-2008049722

PATIENT
  Age: 68 Year
  Sex: Male
  Weight: 100 kg

DRUGS (11)
  1. CHANTIX [Suspect]
  2. ADVAIR DISKUS 100/50 [Concomitant]
  3. ALLOPURINOL [Concomitant]
  4. ASPIRIN [Concomitant]
  5. ATIVAN [Concomitant]
  6. VALSARTAN [Concomitant]
  7. ISOPTIN [Concomitant]
  8. LIPITOR [Concomitant]
  9. ALBUTEROL [Concomitant]
  10. MONTELUKAST SODIUM [Concomitant]
  11. VOLTAREN [Concomitant]

REACTIONS (7)
  - ANOREXIA [None]
  - ASTHENIA [None]
  - COMMUNICATION DISORDER [None]
  - HYPOAESTHESIA [None]
  - INSOMNIA [None]
  - OEDEMA PERIPHERAL [None]
  - STRESS [None]
